FAERS Safety Report 16697713 (Version 1)
Quarter: 2019Q4

REPORT INFORMATION
  Report Type: Spontaneous
  Country: US (occurrence: US)
  Receive Date: 20190812
  Receipt Date: 20190812
  Transmission Date: 20200122
  Serious: Yes (Life-Threatening, Hospitalization)
  Sender: FDA-Public Use
  Company Number: None

PATIENT
  Sex: Female

DRUGS (17)
  1. CALCIUM [Concomitant]
     Active Substance: CALCIUM
  2. LEVOTHYROXINE. [Concomitant]
     Active Substance: LEVOTHYROXINE
  3. LIDOCAINE-PRILOCAINE CREAM [Concomitant]
  4. MAGNESIUM CITRATE. [Concomitant]
     Active Substance: MAGNESIUM CITRATE
  5. PIQRAY [Suspect]
     Active Substance: ALPELISIB
     Route: 048
     Dates: start: 20190618
  6. FASLODEX [Concomitant]
     Active Substance: FULVESTRANT
  7. LORAZEPAM. [Concomitant]
     Active Substance: LORAZEPAM
  8. VITAMIN K [Concomitant]
     Active Substance: PHYTONADIONE
  9. ALBUMIN 25% [Concomitant]
     Active Substance: ALBUMIN HUMAN
  10. ZINC. [Concomitant]
     Active Substance: ZINC
  11. BENADRYL [Concomitant]
     Active Substance: DIPHENHYDRAMINE HYDROCHLORIDE
  12. MELATONIN [Concomitant]
     Active Substance: MELATONIN
  13. METOCLOPRAMIDE. [Concomitant]
     Active Substance: METOCLOPRAMIDE
  14. MULTIVITAMIN [Concomitant]
     Active Substance: VITAMINS
  15. DOCUSATE [Concomitant]
     Active Substance: DOCUSATE
  16. DEXAMETHASONE. [Concomitant]
     Active Substance: DEXAMETHASONE
  17. VITAMIN D3 [Concomitant]
     Active Substance: CHOLECALCIFEROL

REACTIONS (1)
  - Hyperglycaemia [None]
